FAERS Safety Report 7860203-0 (Version None)
Quarter: 2011Q4

REPORT INFORMATION
  Report Type: 
  Country: None (occurrence: None)
  Receive Date: 20111027
  Receipt Date: 20111018
  Transmission Date: 20120403
  Serious: Yes (Hospitalization)
  Sender: FDA-Public Use
  Company Number: FR-ROCHE-715079

PATIENT
  Sex: Female
  Weight: 53 kg

DRUGS (20)
  1. GANCICLOVIR SODIUM [Suspect]
     Indication: PRODUCT USED FOR UNKNOWN INDICATION
     Route: 065
     Dates: start: 20100727, end: 20100809
  2. VALCYTE [Suspect]
     Dosage: FREQUENCY: PER 2 DAYS.
     Route: 065
     Dates: start: 20100809, end: 20100823
  3. VALCYTE [Suspect]
     Route: 065
  4. EVEROLIMUS [Suspect]
     Dosage: TABLET
     Route: 065
  5. CYCLOSPORINE [Suspect]
     Indication: RENAL TRANSPLANT
     Route: 048
  6. PREDNISONE [Suspect]
     Indication: RENAL TRANSPLANT
     Route: 048
  7. MYCOPHENOLATE MOFETIL (CELLCEPT) [Suspect]
     Route: 048
  8. MYCOPHENOLATE MOFETIL (CELLCEPT) [Suspect]
     Dosage: DOSE DECREASE TO 1 GM
     Route: 048
  9. XANAX [Concomitant]
     Dosage: TOTAL DAILY DOSE: 0.25 (UNITS: NOT PROVIDED)
     Route: 048
  10. ROCEPHIN [Concomitant]
     Route: 048
     Dates: start: 20100803, end: 20100809
  11. MYCOPHENOLATE MOFETIL (CELLCEPT) [Suspect]
     Indication: RENAL TRANSPLANT
     Dosage: TEMPORARILY INTERRUPTED.
     Route: 048
     Dates: start: 20100611, end: 20100916
  12. CYCLOSPORINE [Suspect]
     Route: 048
  13. HEPARIN CALCIUM [Suspect]
     Indication: PRODUCT USED FOR UNKNOWN INDICATION
     Dosage: DOSE: 0.7, TEMPORAIRILY INTERRUPTED
     Route: 065
     Dates: start: 20100525, end: 20100715
  14. SULFAMETHOXAZOLE AND TRIMETHOPRIM [Suspect]
     Indication: PRODUCT USED FOR UNKNOWN INDICATION
     Dosage: DOSE: 400
     Route: 048
  15. VALCYTE [Suspect]
     Indication: PRODUCT USED FOR UNKNOWN INDICATION
     Dosage: FREQUENCY: PER 2 DAYS.
     Route: 065
     Dates: start: 20100706, end: 20100708
  16. PREDNISONE [Suspect]
     Dosage: DOSE DECREASED TO 7.5 MG DAILY
     Route: 048
  17. EVEROLIMUS [Suspect]
     Indication: RENAL TRANSPLANT
     Route: 065
  18. ARANESP [Concomitant]
     Dosage: TDD: 40 (UNITS NOT PROVIDED).
     Route: 042
  19. NEXIUM [Concomitant]
     Route: 048
  20. ARANESP [Concomitant]
     Route: 042

REACTIONS (7)
  - NEUTROPENIA [None]
  - DYSPEPSIA [None]
  - CITROBACTER INFECTION [None]
  - MUSCLE HAEMORRHAGE [None]
  - LEUKOPENIA [None]
  - DEHYDRATION [None]
  - FEBRILE NEUTROPENIA [None]
